FAERS Safety Report 19827735 (Version 2)
Quarter: 2021Q3

REPORT INFORMATION
  Report Type: Spontaneous
  Country: RU (occurrence: RU)
  Receive Date: 20210914
  Receipt Date: 20210916
  Transmission Date: 20211014
  Serious: Yes (Other)
  Sender: FDA-Public Use
  Company Number: RU-VIFOR (INTERNATIONAL) INC.-VIT-2021-07319

PATIENT
  Sex: Female
  Weight: 97 kg

DRUGS (3)
  1. ARANESP [Concomitant]
     Active Substance: DARBEPOETIN ALFA
     Dates: start: 202010
  2. VELPHORO [Suspect]
     Active Substance: SUCROFERRIC OXYHYDROXIDE
     Indication: PRODUCT USED FOR UNKNOWN INDICATION
     Route: 048
     Dates: start: 202104, end: 20210815
  3. ZEMPLAR [Concomitant]
     Active Substance: PARICALCITOL
     Dates: start: 202103

REACTIONS (4)
  - Blood phosphorus decreased [Recovered/Resolved]
  - Nausea [Recovering/Resolving]
  - Diarrhoea [Recovering/Resolving]
  - Abdominal pain [Recovering/Resolving]

NARRATIVE: CASE EVENT DATE: 20210810
